FAERS Safety Report 4279397-1 (Version None)
Quarter: 2004Q1

REPORT INFORMATION
  Report Type: 
  Country: None (occurrence: None)
  Receive Date: 20040127
  Receipt Date: 20040122
  Transmission Date: 20041129
  Serious: Yes (Death, Other)
  Sender: FDA-Public Use
  Company Number: WAES 0401USA01541

PATIENT
  Age: 2 Day
  Weight: 2 kg

DRUGS (1)
  1. INDOCIN I.V. [Suspect]
     Indication: PATENT DUCTUS ARTERIOSUS
     Route: 042

REACTIONS (3)
  - GASTRIC PERFORATION [None]
  - SEPSIS [None]
  - SEPSIS NEONATAL [None]
